FAERS Safety Report 4710489-6 (Version None)
Quarter: 2005Q3

REPORT INFORMATION
  Report Type: 
  Country: None (occurrence: None)
  Receive Date: 20050707
  Receipt Date: 20050624
  Transmission Date: 20060218
  Serious: Yes (Other)
  Sender: FDA-Public Use
  Company Number: 2005093128

PATIENT
  Sex: Female

DRUGS (1)
  1. VIAGRA [Suspect]
     Indication: PULMONARY HYPERTENSION
     Dosage: 300 MG (, 1 IN 1 D),

REACTIONS (3)
  - FLUSHING [None]
  - HEADACHE [None]
  - VISUAL ACUITY REDUCED [None]
